FAERS Safety Report 8841181 (Version 1)
Quarter: 2012Q4

REPORT INFORMATION
  Report Type: 
  Country: US (occurrence: US)
  Receive Date: 20121015
  Receipt Date: 20121015
  Transmission Date: 20130627
  Serious: No
  Sender: FDA-Public Use
  Company Number: US-PFIZER INC-2012255023

PATIENT
  Age: 58 Year
  Sex: Female
  Weight: 98.41 kg

DRUGS (4)
  1. PRISTIQ [Suspect]
     Indication: DEPRESSION
     Dosage: UNK, 1x/day
     Route: 048
     Dates: start: 201208, end: 201209
  2. PRISTIQ [Suspect]
     Indication: ANXIETY
  3. LISINOPRIL [Concomitant]
     Indication: HYPERTENSION
     Dosage: UNK
     Dates: end: 201208
  4. METFORMIN [Concomitant]
     Indication: DIABETES MELLITUS
     Dosage: UNK
     Dates: end: 201208

REACTIONS (7)
  - Blood glucose increased [Unknown]
  - Blood uric acid increased [Unknown]
  - Drug ineffective [Unknown]
  - Nightmare [Recovered/Resolved]
  - Panic attack [Not Recovered/Not Resolved]
  - Weight decreased [Unknown]
  - Nervousness [Recovered/Resolved]
